FAERS Safety Report 9378292 (Version 2)
Quarter: 2013Q4

REPORT INFORMATION
  Report Type: Report from Study
  Country: IE (occurrence: IE)
  Receive Date: 20130701
  Receipt Date: 20131121
  Transmission Date: 20140711
  Serious: Yes (Other)
  Sender: FDA-Public Use
  Company Number: IE-US-EMD SERONO, INC.-7220477

PATIENT
  Age: 69 Year
  Sex: Male

DRUGS (2)
  1. SAIZEN [Suspect]
     Indication: PITUITARY TUMOUR
     Route: 058
     Dates: start: 20120523, end: 201301
  2. SAIZEN [Suspect]
     Indication: GROWTH HORMONE DEFICIENCY
     Route: 058
     Dates: start: 20120306, end: 20120522

REACTIONS (1)
  - Pituitary tumour recurrent [Unknown]
